FAERS Safety Report 20621222 (Version 1)
Quarter: 2022Q1

REPORT INFORMATION
  Report Type: Spontaneous
  Country: US (occurrence: None)
  Receive Date: 20220322
  Receipt Date: 20220322
  Transmission Date: 20220423
  Serious: Yes (Hospitalization)
  Sender: FDA-Public Use
  Company Number: None

PATIENT
  Age: 59 Year
  Sex: Male
  Weight: 68.2 kg

DRUGS (1)
  1. CISPLATIN [Suspect]
     Active Substance: CISPLATIN
     Indication: Product used for unknown indication
     Dates: start: 20130218, end: 20130311

REACTIONS (3)
  - Dysphagia [None]
  - Pneumonia aspiration [None]
  - Procedural failure [None]

NARRATIVE: CASE EVENT DATE: 20211220
